FAERS Safety Report 8987684 (Version 1)
Quarter: 2012Q4

REPORT INFORMATION
  Report Type: 
  Country: US (occurrence: US)
  Receive Date: 20121227
  Receipt Date: 20121227
  Transmission Date: 20130627
  Serious: Yes (Hospitalization, Other)
  Sender: FDA-Public Use
  Company Number: US-ASTRAZENECA-2012SE86458

PATIENT
  Age: 59 Year
  Sex: Female

DRUGS (5)
  1. NEXIUM [Suspect]
     Indication: GASTROOESOPHAGEAL REFLUX DISEASE
     Route: 048
  2. PRILOSEC OTC [Suspect]
     Indication: GASTROOESOPHAGEAL REFLUX DISEASE
     Route: 048
  3. CRESTOR [Suspect]
     Route: 048
  4. PREVACID [Concomitant]
  5. ZANTAC [Concomitant]

REACTIONS (6)
  - Arnold-Chiari malformation [Unknown]
  - Gastrooesophageal reflux disease [Unknown]
  - Hiatus hernia [Unknown]
  - Duodenal ulcer [Unknown]
  - Intentional drug misuse [Unknown]
  - Drug ineffective [Unknown]
